FAERS Safety Report 14977661 (Version 2)
Quarter: 2018Q3

REPORT INFORMATION
  Report Type: Spontaneous
  Country: US (occurrence: US)
  Receive Date: 20180606
  Receipt Date: 20180705
  Transmission Date: 20181010
  Serious: No
  Sender: FDA-Public Use
  Company Number: US-ASTRAZENECA-2018SE67160

PATIENT
  Age: 6 Year
  Sex: Male

DRUGS (5)
  1. PULMICORT RESPULES [Suspect]
     Active Substance: BUDESONIDE
     Indication: ASTHMA
     Dosage: 0.25 MG/2ML TO BE USED ONCE OR TWICE PER DAY AS NEEDED
     Route: 055
     Dates: start: 2012
  2. ALBUTEROL SOLUTION [Concomitant]
     Indication: INHALATION THERAPY
     Dosage: AS REQUIRED
     Route: 055
  3. SYMBICORT [Suspect]
     Active Substance: BUDESONIDE\FORMOTEROL FUMARATE DIHYDRATE
     Indication: ASTHMA
     Dosage: 160/4.5 MCG, 2 PUFFS, ONCE PER DAY
     Route: 055
  4. PULMICORT RESPULES [Suspect]
     Active Substance: BUDESONIDE
     Indication: ASTHMA
     Route: 055
     Dates: start: 2012, end: 2017
  5. BUDESONIDE. [Concomitant]
     Active Substance: BUDESONIDE
     Indication: ASTHMA
     Route: 055
     Dates: start: 2017

REACTIONS (8)
  - Pulmonary function test decreased [Unknown]
  - Off label use [Unknown]
  - Asthma [Unknown]
  - Product use issue [Unknown]
  - Cough [Unknown]
  - Dyspnoea [Unknown]
  - Drug administered to patient of inappropriate age [Unknown]
  - Eczema [Unknown]

NARRATIVE: CASE EVENT DATE: 2012
